FAERS Safety Report 4532652-X (Version None)
Quarter: 2004Q4

REPORT INFORMATION
  Report Type: 
  Country: None (occurrence: None)
  Receive Date: 20041221
  Receipt Date: 20041208
  Transmission Date: 20050328
  Serious: Yes (Hospitalization, Other)
  Sender: FDA-Public Use
  Company Number: PHNU2004DE04120

PATIENT
  Sex: Female

DRUGS (1)
  1. ESTRADOT [Suspect]
     Indication: HYSTERECTOMY
     Route: 062
     Dates: start: 20030101

REACTIONS (5)
  - ABDOMINAL DISCOMFORT [None]
  - ABDOMINAL PAIN [None]
  - APPENDICECTOMY [None]
  - APPENDICITIS [None]
  - ENDOMETRIOSIS [None]
